FAERS Safety Report 7819212-X (Version None)
Quarter: 2011Q4

REPORT INFORMATION
  Report Type: 
  Country: None (occurrence: None)
  Receive Date: 20111018
  Receipt Date: 20111011
  Transmission Date: 20120403
  Serious: Yes (Hospitalization)
  Sender: FDA-Public Use
  Company Number: KR-SANOFI-AVENTIS-2011SA066460

PATIENT
  Age: 75 Year
  Sex: Female
  Weight: 56 kg

DRUGS (2)
  1. NOVORAPID [Suspect]
     Indication: DIABETES MELLITUS
     Route: 058
  2. LANTUS [Suspect]
     Indication: DIABETES MELLITUS
     Route: 058

REACTIONS (2)
  - HYPOGLYCAEMIC UNCONSCIOUSNESS [None]
  - HOSPITALISATION [None]
